FAERS Safety Report 8524781-0 (Version None)
Quarter: 2012Q3

REPORT INFORMATION
  Report Type: 
  Country: None (occurrence: None)
  Receive Date: 20120720
  Receipt Date: 20120719
  Transmission Date: 20120928
  Serious: Yes (Death, Life-Threatening, Hospitalization)
  Sender: FDA-Public Use
  Company Number: FR-ROCHE-1065196

PATIENT
  Age: 41 Year
  Sex: Female
  Weight: 70 kg

DRUGS (2)
  1. XELODA [Suspect]
     Indication: RECTAL CANCER
     Route: 048
     Dates: start: 20120405, end: 20120416
  2. XELODA [Suspect]
     Route: 048
     Dates: start: 20120410, end: 20120413

REACTIONS (8)
  - NECROTISING COLITIS [None]
  - DIARRHOEA [None]
  - BONE MARROW FAILURE [None]
  - MUCOUS MEMBRANE DISORDER [None]
  - RASH [None]
  - RADIATION MUCOSITIS [None]
  - LARGE INTESTINE PERFORATION [None]
  - SKIN REACTION [None]
